FAERS Safety Report 8369043-X (Version None)
Quarter: 2012Q2

REPORT INFORMATION
  Report Type: 
  Country: None (occurrence: None)
  Receive Date: 20120518
  Receipt Date: 20120508
  Transmission Date: 20120825
  Serious: Yes (Other)
  Sender: FDA-Public Use
  Company Number: US-ROCHE-1069108

PATIENT

DRUGS (3)
  1. COPEGUS [Suspect]
     Indication: HEPATITIS C
     Dosage: 600-1400 MG PER DAY
     Route: 065
  2. PEGINTERFERON ALFA-2B [Suspect]
     Indication: HEPATITIS C
     Route: 065
  3. BOCEPREVIR [Suspect]
     Indication: HEPATITIS C
     Route: 065

REACTIONS (2)
  - ANAEMIA [None]
  - CARDIOVASCULAR DISORDER [None]
